FAERS Safety Report 6227782-0 (Version None)
Quarter: 2009Q2

REPORT INFORMATION
  Report Type: 
  Country: None (occurrence: None)
  Receive Date: 20090612
  Receipt Date: 20090602
  Transmission Date: 20091009
  Serious: Yes (Hospitalization, Other)
  Sender: FDA-Public Use
  Company Number: PHEH2009US03900

PATIENT
  Sex: Female
  Weight: 84.807 kg

DRUGS (16)
  1. RECLAST [Suspect]
     Indication: OSTEOPOROSIS POSTMENOPAUSAL
     Dosage: 5 MG
     Route: 042
  2. DETROL [Concomitant]
     Dosage: 4 MG, QD
     Route: 048
  3. TOPROL-XL [Concomitant]
     Dosage: 50 MG, QD
     Route: 048
  4. TRAMADOL HCL [Concomitant]
     Dosage: 50 MG, QID
     Route: 048
  5. XALATAN [Concomitant]
     Indication: GLAUCOMA
     Dosage: 0.005 %, QHS
  6. ASPIRIN [Concomitant]
     Dosage: 81 MG, QOD
     Route: 048
  7. MULTI-VITAMINS [Concomitant]
     Dosage: 1 TABLET, DAILY
     Route: 048
  8. CALCIUM CITRATE [Concomitant]
     Dosage: 1000 MG, BID
     Route: 048
  9. LASIX [Concomitant]
     Dosage: 40 MG, QD
     Route: 048
  10. SYNTHROID [Concomitant]
     Dosage: 75 UG, QD
     Route: 048
  11. DILTIAZEM [Concomitant]
     Dosage: 120 MG, QD
     Route: 048
  12. NEXIUM [Concomitant]
     Dosage: 40 MG, QD
     Route: 048
  13. K-DUR [Concomitant]
     Dosage: 20 MEQ, QD
     Route: 048
  14. SENNA [Concomitant]
     Dosage: 1 TABLET, PRN
     Route: 048
  15. MIRALAX [Concomitant]
     Dosage: 1 CAP FULL, DAILY
     Route: 048
  16. DOXYLAMINE SUCCINATE [Concomitant]
     Dosage: UNK, PRN
     Route: 048

REACTIONS (16)
  - AMNESIA [None]
  - ARTHRALGIA [None]
  - CLUSTER HEADACHE [None]
  - CONJUNCTIVITIS [None]
  - DIPLOPIA [None]
  - DRUG HYPERSENSITIVITY [None]
  - EYE PAIN [None]
  - EYELID BLEEDING [None]
  - LACRIMATION INCREASED [None]
  - NAUSEA [None]
  - PAIN IN EXTREMITY [None]
  - PALPITATIONS [None]
  - PERIORBITAL DISORDER [None]
  - SCLERITIS [None]
  - SWELLING [None]
  - VISION BLURRED [None]
